FAERS Safety Report 13575223 (Version 1)
Quarter: 2017Q2

REPORT INFORMATION
  Report Type: Spontaneous
  Country: US (occurrence: US)
  Receive Date: 20170523
  Receipt Date: 20170523
  Transmission Date: 20170830
  Serious: Yes (Other)
  Sender: FDA-Public Use
  Company Number: None

PATIENT
  Age: 62 Year
  Sex: Female
  Weight: 18.14 kg

DRUGS (1)
  1. MAXALT-MLT [Suspect]
     Active Substance: RIZATRIPTAN BENZOATE
     Indication: MIGRAINE
     Dosage: 10MG QTY 27 TAKE 1 AS NEW MAY REPEAT IN 2 HOURS ORAL
     Route: 048
     Dates: start: 20140527

REACTIONS (3)
  - Drug ineffective [None]
  - Headache [None]
  - Gastrointestinal disorder [None]

NARRATIVE: CASE EVENT DATE: 20140527
